FAERS Safety Report 8409216-0 (Version None)
Quarter: 2012Q2

REPORT INFORMATION
  Report Type: 
  Country: None (occurrence: None)
  Receive Date: 20120604
  Receipt Date: 20120601
  Transmission Date: 20120825
  Serious: Yes (Other)
  Sender: FDA-Public Use
  Company Number: BE-BAYER-2012-054720

PATIENT

DRUGS (1)
  1. INTERFERON BETA-1B [Suspect]
     Dosage: UNK
     Dates: end: 20110701

REACTIONS (1)
  - MOBILITY DECREASED [None]
